FAERS Safety Report 10827233 (Version 2)
Quarter: 2016Q1

REPORT INFORMATION
  Report Type: Report from Study
  Country: US (occurrence: US)
  Receive Date: 20150219
  Receipt Date: 20160125
  Transmission Date: 20160525
  Serious: No
  Sender: FDA-Public Use
  Company Number: US-ABBVIE-14K-163-1319981-00

PATIENT
  Age: 23 Year
  Sex: Female
  Weight: 53.57 kg

DRUGS (5)
  1. CAMILA [Concomitant]
     Active Substance: NORETHINDRONE
     Indication: CONTRACEPTION
  2. HUMIRA [Suspect]
     Active Substance: ADALIMUMAB
     Indication: ANKYLOSING SPONDYLITIS
     Route: 065
     Dates: start: 20141124
  3. OMEPRAZOLE. [Concomitant]
     Active Substance: OMEPRAZOLE
     Indication: PRODUCT USED FOR UNKNOWN INDICATION
  4. CELEBREX [Concomitant]
     Active Substance: CELECOXIB
     Indication: ANKYLOSING SPONDYLITIS
  5. CELEBREX [Concomitant]
     Active Substance: CELECOXIB
     Indication: PAIN

REACTIONS (9)
  - Injection site papule [Unknown]
  - Injection site warmth [Unknown]
  - Injection site erythema [Recovered/Resolved]
  - Injection site papule [Recovered/Resolved]
  - Injection site urticaria [Recovered/Resolved]
  - Injection site rash [Recovered/Resolved]
  - Injection site pruritus [Recovered/Resolved]
  - Injection site urticaria [Unknown]
  - Injection site erythema [Unknown]

NARRATIVE: CASE EVENT DATE: 20141124
